FAERS Safety Report 8563992-5 (Version None)
Quarter: 2012Q3

REPORT INFORMATION
  Report Type: 
  Country: None (occurrence: None)
  Receive Date: 20120803
  Receipt Date: 20120731
  Transmission Date: 20120928
  Serious: Yes (Other)
  Sender: FDA-Public Use
  Company Number: PHEH2012US012907

PATIENT
  Sex: Male

DRUGS (1)
  1. EXELON [Suspect]
     Dosage: 4.6 MG, QD
     Route: 062

REACTIONS (2)
  - FALL [None]
  - MULTIPLE FRACTURES [None]
